FAERS Safety Report 8131563-0 (Version None)
Quarter: 2012Q1

REPORT INFORMATION
  Report Type: 
  Country: None (occurrence: None)
  Receive Date: 20120208
  Receipt Date: 20120201
  Transmission Date: 20120608
  Serious: Yes (Death)
  Sender: FDA-Public Use
  Company Number: DSA_54897_2012

PATIENT
  Sex: Female
  Weight: 47.6277 kg

DRUGS (1)
  1. XENAZINE [Suspect]
     Indication: HUNTINGTON'S DISEASE
     Dosage: 12.5 MG TID, ORAL
     Route: 048
     Dates: start: 20110908, end: 20120127

REACTIONS (2)
  - HUNTINGTON'S DISEASE [None]
  - DISEASE PROGRESSION [None]
